FAERS Safety Report 8198938-5 (Version None)
Quarter: 2012Q1

REPORT INFORMATION
  Report Type: 
  Country: None (occurrence: None)
  Receive Date: 20120309
  Receipt Date: 20120229
  Transmission Date: 20120608
  Serious: Yes (Hospitalization)
  Sender: FDA-Public Use
  Company Number: CA-JNJFOC-20120300543

PATIENT
  Sex: Male
  Weight: 100.5 kg

DRUGS (2)
  1. REMICADE [Suspect]
     Dates: start: 20080723
  2. REMICADE [Suspect]
     Indication: PSORIASIS
     Dates: start: 20111206

REACTIONS (1)
  - LEG AMPUTATION [None]
